FAERS Safety Report 7001341-4 (Version None)
Quarter: 2010Q3

REPORT INFORMATION
  Report Type: 
  Country: None (occurrence: None)
  Receive Date: 20100920
  Receipt Date: 20100609
  Transmission Date: 20110219
  Serious: No
  Sender: FDA-Public Use
  Company Number: US-ASTRAZENECA-2010SE26739

PATIENT
  Age: 26 Year
  Sex: Male

DRUGS (5)
  1. SEROQUEL [Suspect]
     Indication: SLEEP DISORDER
     Route: 048
  2. HYDROXYZINE [Concomitant]
  3. SINGULAIR [Concomitant]
  4. TRAZODONE HCL [Concomitant]
  5. ZYPREXA [Concomitant]

REACTIONS (6)
  - ANGER [None]
  - DEPRESSION [None]
  - INSOMNIA [None]
  - PANIC ATTACK [None]
  - TREMOR [None]
  - WEIGHT INCREASED [None]
